FAERS Safety Report 16761944 (Version 2)
Quarter: 2020Q2

REPORT INFORMATION
  Report Type: Spontaneous
  Country: US (occurrence: US)
  Receive Date: 20190830
  Receipt Date: 20200623
  Transmission Date: 20200713
  Serious: Yes (Death, Other)
  Sender: FDA-Public Use
  Company Number: US-JNJFOC-20190832351

PATIENT
  Age: 38 Year
  Sex: Female

DRUGS (7)
  1. SPRAVATO [Suspect]
     Active Substance: ESKETAMINE
     Dates: start: 20190711, end: 20190711
  2. KEPPRA [Concomitant]
     Active Substance: LEVETIRACETAM
     Indication: SEIZURE
  3. SPRAVATO [Suspect]
     Active Substance: ESKETAMINE
     Dates: start: 20190725, end: 20190725
  4. SPRAVATO [Suspect]
     Active Substance: ESKETAMINE
     Indication: DEPRESSION
     Dates: start: 20190709, end: 20190709
  5. SPRAVATO [Suspect]
     Active Substance: ESKETAMINE
     Dates: start: 20190718, end: 20190718
  6. SPRAVATO [Suspect]
     Active Substance: ESKETAMINE
     Dates: start: 20190729, end: 20190729
  7. SPRAVATO [Suspect]
     Active Substance: ESKETAMINE
     Dates: start: 20190715, end: 20190715

REACTIONS (3)
  - Blood potassium decreased [Unknown]
  - Blood glucose decreased [Unknown]
  - Electrolyte imbalance [Fatal]

NARRATIVE: CASE EVENT DATE: 20190723
